FAERS Safety Report 9454113 (Version 4)
Quarter: 2014Q3

REPORT INFORMATION
  Report Type: Spontaneous
  Country: US (occurrence: None)
  Receive Date: 20130807
  Receipt Date: 20140813
  Transmission Date: 20150326
  Serious: Yes (Congenital Anomaly)
  Sender: FDA-Public Use
  Company Number: SYM-2013-07788

PATIENT
  Age: 0 Day
  Sex: Male

DRUGS (1)
  1. WELLBUTRIN XL [Suspect]
     Active Substance: BUPROPION HYDROCHLORIDE
     Indication: PRODUCT USED FOR UNKNOWN INDICATION
     Route: 064
     Dates: start: 20041204

REACTIONS (11)
  - Sepsis [None]
  - Cardiac murmur [None]
  - Persistent foetal circulation [None]
  - Supraventricular tachycardia [None]
  - Maternal drugs affecting foetus [None]
  - Large for dates baby [None]
  - Tachypnoea [None]
  - Caesarean section [None]
  - Respiratory distress [None]
  - Ventricular dysfunction [None]
  - Bicuspid aortic valve [None]

NARRATIVE: CASE EVENT DATE: 20050626
